FAERS Safety Report 24016908 (Version 2)
Quarter: 2024Q3

REPORT INFORMATION
  Report Type: Report from Study
  Country: JP (occurrence: JP)
  Receive Date: 20240626
  Receipt Date: 20240801
  Transmission Date: 20241016
  Serious: Yes (Hospitalization)
  Sender: APELLIS PHARMACEUTICALS
  Company Number: JP-BIOVITRUM-2024-JP-008640

PATIENT
  Weight: 55 kg

DRUGS (16)
  1. EMPAVELI [Suspect]
     Active Substance: PEGCETACOPLAN
     Indication: Paroxysmal nocturnal haemoglobinuria
     Dosage: TWICE PER WEEK
     Route: 058
     Dates: start: 20190427, end: 20231203
  2. EMPAVELI [Suspect]
     Active Substance: PEGCETACOPLAN
     Dosage: TWICE PER WEEK
     Route: 058
     Dates: start: 20231204, end: 20231221
  3. EMPAVELI [Suspect]
     Active Substance: PEGCETACOPLAN
     Dosage: THREE TIMES PER WEEK
     Route: 058
     Dates: start: 20231222, end: 20240317
  4. EMPAVELI [Suspect]
     Active Substance: PEGCETACOPLAN
     Route: 058
     Dates: start: 20240318
  5. MIYA-BM [Concomitant]
     Active Substance: CLOSTRIDIUM BUTYRICUM SPORES STRAIN M-55
     Indication: Product used for unknown indication
     Dosage: 2.000G
     Route: 048
     Dates: start: 20240217, end: 20240305
  6. FEXOFENADINE HYDROCHLORIDE [Concomitant]
     Active Substance: FEXOFENADINE HYDROCHLORIDE
     Indication: Ill-defined disorder
     Dosage: 120.000MG
     Route: 048
     Dates: start: 20240319, end: 20240417
  7. OLOPATADINE [Concomitant]
     Active Substance: OLOPATADINE
     Indication: Ill-defined disorder
     Dosage: OPHTHALMIC SOLUTION 0.1?
     Route: 047
     Dates: start: 20240319, end: 20240417
  8. METHYL SALICYLATE [Concomitant]
     Active Substance: METHYL SALICYLATE
     Indication: Ill-defined disorder
     Dosage: OPHTHALMIC SOLUTION 0.1?
     Route: 003
     Dates: start: 20240215, end: 20240305
  9. DL-CAMPHOR [Concomitant]
     Indication: Ill-defined disorder
     Dosage: OPHTHALMIC SOLUTION 0.1?
     Route: 003
     Dates: start: 20240215, end: 20240305
  10. L-menthol [Concomitant]
     Indication: Ill-defined disorder
     Dosage: OPHTHALMIC SOLUTION 0.1?
     Route: 003
     Dates: start: 20240215, end: 20240305
  11. CODEINE PHOSPHATE [Concomitant]
     Active Substance: CODEINE PHOSPHATE
     Indication: Ill-defined disorder
     Dosage: 4.000G
     Route: 048
     Dates: end: 20231207
  12. CALONAL [Concomitant]
     Active Substance: ACETAMINOPHEN
     Indication: Ill-defined disorder
     Dosage: 300.000MG
     Route: 048
     Dates: end: 20231207
  13. LOXOPROFEN SODIUM [Concomitant]
     Active Substance: LOXOPROFEN SODIUM
     Indication: Ill-defined disorder
     Route: 003
     Dates: end: 20231207
  14. Bio three od [Concomitant]
     Indication: Ill-defined disorder
     Dosage: 3 TABLETS
     Route: 048
     Dates: end: 20231207
  15. GLYCOSAMINOGLYCANS [Concomitant]
     Active Substance: GLYCOSAMINOGLYCANS
     Indication: Product used for unknown indication
     Route: 003
     Dates: end: 20231207
  16. GLYCOSAMINOGLYCANS [Concomitant]
     Active Substance: GLYCOSAMINOGLYCANS
     Indication: Product used for unknown indication
     Dosage: SOFT OINTMENT
     Route: 003
     Dates: end: 20231207

REACTIONS (7)
  - Bacterial infection [Recovered/Resolved]
  - Haemolysis [Recovered/Resolved]
  - Fatigue [Not Recovered/Not Resolved]
  - Skin papilloma [Recovered/Resolved]
  - Erythema [Recovered/Resolved]
  - Sleep apnoea syndrome [Not Recovered/Not Resolved]
  - Insomnia [Recovered/Resolved]

NARRATIVE: CASE EVENT DATE: 20240122
